FAERS Safety Report 4362679-2 (Version None)
Quarter: 2004Q2

REPORT INFORMATION
  Report Type: 
  Country: None (occurrence: None)
  Receive Date: 20040517
  Receipt Date: 20040409
  Transmission Date: 20050107
  Serious: No
  Sender: FDA-Public Use
  Company Number: S04-USA-01983-01

PATIENT
  Age: 81 Year
  Sex: Female

DRUGS (19)
  1. NAMENDA [Suspect]
     Indication: DEMENTIA ALZHEIMER'S TYPE
     Dosage: 5 MG QD PO
     Route: 048
     Dates: start: 20040320, end: 20040326
  2. NAMENDA [Suspect]
     Indication: DEMENTIA ALZHEIMER'S TYPE
     Dosage: 10 MG QD PO
     Route: 048
     Dates: start: 20040327, end: 20040402
  3. NAMENDA [Concomitant]
     Indication: DEMENTIA ALZHEIMER'S TYPE
     Dosage: 15 MG QD PO
     Route: 048
     Dates: start: 20040403
  4. EXELON [Concomitant]
  5. ZOLOFT [Concomitant]
  6. ACTOS [Concomitant]
  7. LANTUS [Concomitant]
  8. HUMULIN [Concomitant]
  9. PRAVACHOL [Concomitant]
  10. SYTHROID (LEVOTHYROXINE SODIUM) [Concomitant]
  11. PRILOSEC [Concomitant]
  12. METOCLOPRAMIDE [Concomitant]
  13. PHENERGAN [Concomitant]
  14. PERCOCET [Concomitant]
  15. POTASSIUM [Concomitant]
  16. ASPIRIN [Concomitant]
  17. CALCIUM [Concomitant]
  18. DUCOSATE [Concomitant]
  19. EVISTA [Concomitant]

REACTIONS (2)
  - CONFUSIONAL STATE [None]
  - SOMNOLENCE [None]
